FAERS Safety Report 6286577-2 (Version None)
Quarter: 2009Q3

REPORT INFORMATION
  Report Type: 
  Country: None (occurrence: None)
  Receive Date: 20090728
  Receipt Date: 20090722
  Transmission Date: 20100115
  Serious: Yes (Hospitalization)
  Sender: FDA-Public Use
  Company Number: BE-JNJFOC-20090605697

PATIENT
  Sex: Male
  Weight: 93 kg

DRUGS (4)
  1. TMC125 [Suspect]
     Route: 048
  2. TMC125 [Suspect]
     Indication: HIV INFECTION
     Route: 048
  3. RETROVIR [Concomitant]
     Route: 048
  4. RALTEGRAVIR [Concomitant]
     Route: 048

REACTIONS (1)
  - INTERMITTENT CLAUDICATION [None]
